FAERS Safety Report 11813407 (Version 1)
Quarter: 2015Q4

REPORT INFORMATION
  Report Type: Spontaneous
  Country: US (occurrence: None)
  Receive Date: 20151207
  Receipt Date: 20151207
  Transmission Date: 20160305
  Serious: Yes (Other)
  Sender: FDA-Public Use
  Company Number: None

PATIENT
  Age: 16 Year
  Sex: Female
  Weight: 64.41 kg

DRUGS (1)
  1. STRATTERA [Suspect]
     Active Substance: ATOMOXETINE HYDROCHLORIDE
     Indication: ATTENTION DEFICIT/HYPERACTIVITY DISORDER
     Route: 048
     Dates: start: 20151120, end: 20151201

REACTIONS (5)
  - Distractibility [None]
  - Feeling of body temperature change [None]
  - Gastrointestinal disorder [None]
  - Nausea [None]
  - Mood swings [None]

NARRATIVE: CASE EVENT DATE: 20101124
